FAERS Safety Report 9190924 (Version 2)
Quarter: 2013Q1

REPORT INFORMATION
  Report Type: Report from Study
  Country: GR (occurrence: GR)
  Receive Date: 20130326
  Receipt Date: 20130328
  Transmission Date: 20140127
  Serious: Yes (Other)
  Sender: FDA-Public Use
  Company Number: GR-GLAXOSMITHKLINE-B0877746A

PATIENT
  Age: 49 Year
  Sex: Male
  Weight: 70 kg

DRUGS (9)
  1. LAPATINIB [Suspect]
     Indication: GLIOMA
     Dosage: 1000MG PER DAY
     Route: 048
     Dates: start: 20121221, end: 20130111
  2. TEMODAL [Suspect]
     Indication: GLIOMA
     Dosage: 360MG PER DAY
     Route: 042
     Dates: start: 20121221, end: 20121225
  3. DEPAKINE [Concomitant]
     Indication: GLIOBLASTOMA
     Dosage: 500MG TWICE PER DAY
     Route: 048
     Dates: start: 20121218
  4. PENRAZOL [Concomitant]
     Indication: GLIOBLASTOMA
     Dosage: 40MG PER DAY
     Route: 048
  5. VIREAD [Concomitant]
     Indication: HEPATITIS B
     Dosage: 245MG PER DAY
     Route: 048
  6. CLEXANE [Concomitant]
     Indication: THROMBOSIS PROPHYLAXIS
     Dosage: 40IU PER DAY
     Route: 058
     Dates: start: 20121213, end: 20130111
  7. ALOPERIDIN [Concomitant]
     Indication: GLIOBLASTOMA
     Route: 048
     Dates: start: 20121220, end: 20121222
  8. LEXOTANIL [Concomitant]
     Indication: GLIOBLASTOMA
     Dosage: 1.5MG PER DAY
     Route: 048
     Dates: start: 20121220
  9. FILGRASTIM [Concomitant]
     Indication: NEUTROPENIA
     Dosage: 48IU PER DAY
     Route: 058
     Dates: start: 20130114, end: 20130120

REACTIONS (1)
  - Thrombocytopenia [Recovered/Resolved]
